FAERS Safety Report 6152109-2 (Version None)
Quarter: 2009Q2

REPORT INFORMATION
  Report Type: 
  Country: None (occurrence: None)
  Receive Date: 20090408
  Receipt Date: 20090326
  Transmission Date: 20091009
  Serious: Yes (Congenital Anomaly)
  Sender: FDA-Public Use
  Company Number: 2009AL001835

PATIENT
  Sex: Male

DRUGS (2)
  1. FLUOXETINE [Suspect]
     Indication: DRUG EXPOSURE DURING PREGNANCY
     Dosage: 40 MG;TRPL
     Route: 064
     Dates: start: 20030821
  2. PANTOPRAZOLE SODIUM [Concomitant]

REACTIONS (4)
  - CONGENITAL CYSTIC KIDNEY DISEASE [None]
  - MATERNAL ALCOHOL USE [None]
  - MATERNAL DRUGS AFFECTING FOETUS [None]
  - RENAL DYSPLASIA [None]
